FAERS Safety Report 4650773-8 (Version None)
Quarter: 2005Q2

REPORT INFORMATION
  Report Type: 
  Country: None (occurrence: None)
  Receive Date: 20050503
  Receipt Date: 20050420
  Transmission Date: 20051028
  Serious: Yes (Other)
  Sender: FDA-Public Use
  Company Number: US-NOVOPROD-243665

PATIENT
  Age: 57 Year
  Sex: Female

DRUGS (1)
  1. VAGIFEM [Suspect]
     Indication: VULVOVAGINAL DRYNESS
     Dosage: 25 UG, UNK
     Route: 067

REACTIONS (2)
  - VAGINAL HAEMORRHAGE [None]
  - VAGINAL LACERATION [None]
